FAERS Safety Report 15776975 (Version 1)
Quarter: 2018Q4

REPORT INFORMATION
  Report Type: Spontaneous
  Country: US (occurrence: US)
  Receive Date: 20181229
  Receipt Date: 20181229
  Transmission Date: 20190205
  Serious: No
  Sender: FDA-Public Use
  Company Number: None

PATIENT
  Age: 54 Year
  Sex: Male
  Weight: 110.7 kg

DRUGS (7)
  1. GLUCOSAMINE [Concomitant]
     Active Substance: GLUCOSAMINE
  2. FISH OIL SUPPLEMENTS [Concomitant]
     Active Substance: FISH OIL
  3. DAILY MULTI VITAMIN [Concomitant]
  4. METHYLPREDNISOLONE. [Suspect]
     Active Substance: METHYLPREDNISOLONE
     Indication: PAIN IN EXTREMITY
     Dosage: ?          QUANTITY:6 TABLET(S);?
     Route: 048
     Dates: start: 20181228, end: 20181228
  5. MULTI VITAMIN [Concomitant]
     Active Substance: VITAMINS
  6. CHONDROITON [Concomitant]
  7. FISH OIL [Concomitant]
     Active Substance: FISH OIL

REACTIONS (1)
  - Heart rate increased [None]

NARRATIVE: CASE EVENT DATE: 20181228
